FAERS Safety Report 16112446 (Version 1)
Quarter: 2019Q2

REPORT INFORMATION
  Report Type: Spontaneous
  Country: US (occurrence: US)
  Receive Date: 20190324
  Receipt Date: 20190324
  Transmission Date: 20190711
  Serious: Yes (Disabling)
  Sender: FDA-Public Use
  Company Number: None

PATIENT
  Age: 71 Year
  Sex: Male
  Weight: 83.25 kg

DRUGS (1)
  1. WIXELA INHUB [Suspect]
     Active Substance: FLUTICASONE PROPIONATE\SALMETEROL XINAFOATE
     Indication: ASTHMA
     Dosage: ?          OTHER STRENGTH:DON^T KNOW;?
     Route: 055
     Dates: start: 20190304

REACTIONS (6)
  - Dyspnoea [None]
  - Cough [None]
  - Wheezing [None]
  - Asthma [None]
  - Pain [None]
  - Pulmonary congestion [None]

NARRATIVE: CASE EVENT DATE: 20190322
